FAERS Safety Report 10176923 (Version 1)
Quarter: 2014Q2

REPORT INFORMATION
  Report Type: Spontaneous
  Country: US (occurrence: None)
  Receive Date: 20140515
  Receipt Date: 20140515
  Transmission Date: 20141212
  Serious: Yes (Life-Threatening, Hospitalization, Disabling)
  Sender: FDA-Public Use
  Company Number: None

PATIENT
  Age: 44 Year
  Sex: Female
  Weight: 56.25 kg

DRUGS (3)
  1. CEFPROZIL [Suspect]
     Indication: VIRAL INFECTION
     Dosage: 1 TWICE DAILY TAKEN UNDER THE TONGUE
     Dates: start: 20131203, end: 20131212
  2. CEFPROZIL [Suspect]
     Indication: COUGH
     Dosage: 1 TWICE DAILY TAKEN UNDER THE TONGUE
     Dates: start: 20131203, end: 20131212
  3. CEFPROZIL [Suspect]
     Indication: PYREXIA
     Dosage: 1 TWICE DAILY TAKEN UNDER THE TONGUE
     Dates: start: 20131203, end: 20131212

REACTIONS (4)
  - Dizziness [None]
  - Fatigue [None]
  - Autoimmune haemolytic anaemia [None]
  - Respiratory disorder [None]
